FAERS Safety Report 6764219-7 (Version None)
Quarter: 2010Q2

REPORT INFORMATION
  Report Type: 
  Country: None (occurrence: None)
  Receive Date: 20100610
  Receipt Date: 20100603
  Transmission Date: 20101027
  Serious: Yes (Hospitalization)
  Sender: FDA-Public Use
  Company Number: B0658596A

PATIENT
  Age: 33 Year
  Sex: Male

DRUGS (1)
  1. ZYBAN [Suspect]

REACTIONS (2)
  - MEDICATION ERROR [None]
  - PSYCHOTIC DISORDER [None]
